FAERS Safety Report 9306432 (Version 2)
Quarter: 2013Q3

REPORT INFORMATION
  Report Type: Spontaneous
  Country: US (occurrence: None)
  Receive Date: 20130501
  Receipt Date: 20130719
  Transmission Date: 20140515
  Serious: Yes (Hospitalization)
  Sender: FDA-Public Use
  Company Number: 2013035611

PATIENT
  Sex: Female
  Weight: 79.38 kg

DRUGS (31)
  1. PRIVIGEN (IMMUNE GLOBULIN INTRAVENOUS (HUMAN) 10% LIQUID) [Suspect]
     Indication: IMMUNODEFICIENCY COMMON VARIABLE
     Dosage: 1X/28 DAYS
     Route: 042
     Dates: start: 20130325, end: 20130325
  2. PRIVIGEN (IMMUNE GLOBULIN INTRAVENOUS (HUMAN) 10% LIQUID) [Suspect]
     Indication: HYPOGLOBULINAEMIA
     Dosage: 1X/28 DAYS
     Route: 042
     Dates: start: 20130325, end: 20130325
  3. HYDROCODONE-HOMATROPINE SYRUP (HYDROCODONE W/HOMATROPINE) [Concomitant]
  4. HEPARIN (HEPARIN) [Concomitant]
  5. SODIUM CHLORIDE [Concomitant]
  6. L-M-X (LIDOCAINE) [Concomitant]
  7. NYSTATIN (NYSTATIN) [Concomitant]
  8. COUMADIN (WARFARIN SODIUM) [Concomitant]
  9. MIDODRINE (MIDODRINE) [Concomitant]
  10. HYDRALAZINE (HYDRALAZINE) [Concomitant]
  11. POTASSIUM CHLORIDE (POTASSIUM CHLORIDE) [Concomitant]
  12. FOLBIC (TRIOBE /01502401/) [Concomitant]
  13. XANAX (ALPRAZOLAM) [Concomitant]
  14. MORPHINE SULFATE (MORPHINE SULFATE) [Concomitant]
  15. SIMVASTATIN (SIMVASTATIN) [Concomitant]
  16. FLUDROCORTISONE (FLUDROCORTISONE) [Concomitant]
  17. FLONASE (FLUTICASONE PROPIONATE) [Concomitant]
  18. FLOVENT (FLUTICASONE PROPIONATE) [Concomitant]
  19. ATROVENT (IPRATROPIUM BROMIDE) [Concomitant]
  20. HYDROCORTISONE (HYDROCORTISONE) [Concomitant]
  21. MAG DELAY (MAGNESIUM) [Concomitant]
  22. THIAMINE (THIAMINE) [Concomitant]
  23. MS CONTIN [Concomitant]
  24. METOLAZONE (METOLAZONE) [Concomitant]
  25. VITAMIN D (ERGOCALCIFEROL) [Concomitant]
  26. VITAMIN D3 (COLECALCIFEROL) [Concomitant]
  27. IPRATROPIUM BROMIDE (IPRATROPIUM BROMIDE) [Concomitant]
  28. BYSTOLIC (NEBIVOLOL) [Concomitant]
  29. ZANTAC (RANITIDINE HYDROCHLORIDE) [Concomitant]
  30. ZANAFLEX (TIZANIDINE HYDROCHLORIDE) [Concomitant]
  31. SONATA (ZALEPLON) [Concomitant]

REACTIONS (4)
  - Contusion [None]
  - Fall [None]
  - Concussion [None]
  - Skin disorder [None]
